FAERS Safety Report 16033745 (Version 3)
Quarter: 2022Q4

REPORT INFORMATION
  Report Type: Spontaneous
  Country: CA (occurrence: CA)
  Receive Date: 20190305
  Receipt Date: 20221020
  Transmission Date: 20230113
  Serious: Yes (Other)
  Sender: FDA-Public Use
  Company Number: CA-JNJFOC-20190300155

PATIENT
  Age: 15 Year
  Sex: Female

DRUGS (1)
  1. TYLENOL EXTRA STRENGTH [Suspect]
     Active Substance: ACETAMINOPHEN
     Indication: Suspected suicide
     Route: 048
     Dates: start: 20040604

REACTIONS (2)
  - Suicide attempt [Unknown]
  - Dizziness [Unknown]

NARRATIVE: CASE EVENT DATE: 20040604
